FAERS Safety Report 16900090 (Version 1)
Quarter: 2019Q4

REPORT INFORMATION
  Report Type: Spontaneous
  Country: US (occurrence: US)
  Receive Date: 20191009
  Receipt Date: 20191009
  Transmission Date: 20200122
  Serious: Yes (Other)
  Sender: FDA-Public Use
  Company Number: US-BRISTOL-MYERS SQUIBB COMPANY-BMS-2019-093991

PATIENT
  Sex: Male

DRUGS (1)
  1. ELIQUIS [Suspect]
     Active Substance: APIXABAN
     Indication: PRODUCT USED FOR UNKNOWN INDICATION
     Dosage: UNK
     Route: 065
     Dates: start: 2019

REACTIONS (7)
  - Blood urea increased [Unknown]
  - Haemoglobin decreased [Unknown]
  - Serum ferritin increased [Unknown]
  - Haematocrit decreased [Unknown]
  - Blood creatinine increased [Unknown]
  - Haemorrhage [Unknown]
  - Red blood cell count decreased [Unknown]
